FAERS Safety Report 8770456 (Version 1)
Quarter: 2012Q4

REPORT INFORMATION
  Report Type: 
  Country: NZ (occurrence: NZ)
  Receive Date: 20120906
  Receipt Date: 20120906
  Transmission Date: 20130627
  Serious: Yes (Disabling)
  Sender: FDA-Public Use
  Company Number: NZ-009507513-1209NZL000471

PATIENT

DRUGS (5)
  1. FOSAMAX PLUS D [Suspect]
     Indication: PROPHYLAXIS
     Dosage: 70 mg, qw
     Route: 048
  2. METFORMIN [Concomitant]
     Indication: TYPE 2 DIABETES MELLITUS
     Dosage: 1.7 g, qd
     Route: 048
  3. ATORVASTATIN [Concomitant]
     Dosage: 40 mg, qd
     Route: 048
  4. LEVOTHYROXINE SODIUM [Concomitant]
     Dosage: 50 Microgram, qd
     Route: 048
  5. FUROSEMIDE [Concomitant]
     Dosage: 40 mg, qd
     Route: 048

REACTIONS (1)
  - Osteonecrosis [Not Recovered/Not Resolved]
